FAERS Safety Report 8249689-X (Version None)
Quarter: 2012Q1

REPORT INFORMATION
  Report Type: 
  Country: None (occurrence: None)
  Receive Date: 20120327
  Receipt Date: 20120319
  Transmission Date: 20120608
  Serious: Yes (Hospitalization)
  Sender: FDA-Public Use
  Company Number: 2012SP011668

PATIENT
  Age: 17 Year
  Sex: Female

DRUGS (3)
  1. IMPLANON [Suspect]
     Indication: CONTRACEPTION
     Dosage: SEE IMAGE
     Dates: start: 20120217, end: 20120225
  2. IMPLANON [Suspect]
     Indication: CONTRACEPTION
     Dosage: SEE IMAGE
     Dates: end: 20120217
  3. IMPLANON [Suspect]

REACTIONS (3)
  - LYMPHANGITIS [None]
  - INFECTION [None]
  - DRUG HYPERSENSITIVITY [None]
